FAERS Safety Report 5715585-2 (Version None)
Quarter: 2008Q2

REPORT INFORMATION
  Report Type: 
  Country: None (occurrence: None)
  Receive Date: 20080331
  Receipt Date: 20080331
  Transmission Date: 20081010
  Serious: No
  Sender: FDA-Public Use
  Company Number: None

PATIENT
  Sex: Female

DRUGS (3)
  1. BAROSPERSE BARIUM SULFATE [Suspect]
     Indication: GASTROOESOPHAGEAL REFLUX DISEASE
     Dosage: APPROX 3 OUNCES ORAL
     Route: 048
     Dates: start: 20080321
  2. BAROSPERSE BARIUM SULFATE [Suspect]
     Indication: TRACHEOMALACIA
     Dosage: APPROX 3 OUNCES ORAL
     Route: 048
     Dates: start: 20080321
  3. JUSMADE SNO-CONE CHERRY FLAVORED SNOW CONE SYRUP [Concomitant]

REACTIONS (1)
  - RASH ERYTHEMATOUS [None]
